FAERS Safety Report 5031528-1 (Version None)
Quarter: 2006Q2

REPORT INFORMATION
  Report Type: 
  Country: None (occurrence: None)
  Receive Date: 20060621
  Receipt Date: 20060505
  Transmission Date: 20061013
  Serious: Yes (Hospitalization)
  Sender: FDA-Public Use
  Company Number: PHEH2006US05942

PATIENT
  Age: 67 Year
  Sex: Male

DRUGS (10)
  1. GLEEVEC [Suspect]
     Indication: CHRONIC MYELOID LEUKAEMIA
     Dosage: 400 MG, QD
     Route: 048
     Dates: start: 20051001, end: 20060426
  2. GLEEVEC [Suspect]
     Dosage: 200 MG, QD
     Route: 048
     Dates: start: 20060504
  3. ATIVAN [Concomitant]
  4. PROTONIX [Concomitant]
  5. IMIPRAMINE [Concomitant]
  6. REGLAN                                  /USA/ [Concomitant]
  7. IRON [Concomitant]
  8. VITAMINS [Concomitant]
  9. GEMZAR [Concomitant]
     Indication: NON-HODGKIN'S LYMPHOMA
     Dosage: 1500 MG,
     Dates: start: 20060103
  10. NAVELBINE [Concomitant]
     Indication: NON-HODGKIN'S LYMPHOMA
     Dosage: 40 MG, UNK
     Dates: start: 20060103

REACTIONS (5)
  - BRONCHITIS [None]
  - CELLULITIS [None]
  - PANCYTOPENIA [None]
  - RED BLOOD CELL COUNT DECREASED [None]
  - WHITE BLOOD CELL COUNT DECREASED [None]
